FAERS Safety Report 7549059-3 (Version None)
Quarter: 2011Q2

REPORT INFORMATION
  Report Type: 
  Country: None (occurrence: None)
  Receive Date: 20110615
  Receipt Date: 20110602
  Transmission Date: 20111010
  Serious: Yes (Hospitalization)
  Sender: FDA-Public Use
  Company Number: RS-GENENTECH-319364

PATIENT
  Age: 33 Year
  Sex: Male

DRUGS (5)
  1. RITUXIMAB [Suspect]
     Indication: B-CELL LYMPHOMA
     Dosage: 700 MG, Q3W
     Route: 042
     Dates: start: 20100525, end: 20101125
  2. ONCOVIN [Concomitant]
     Indication: B-CELL LYMPHOMA
     Dosage: 2 MG, UNK
     Route: 042
     Dates: start: 20100526, end: 20100910
  3. PREDNISONE [Concomitant]
     Indication: B-CELL LYMPHOMA
     Dosage: 100 MG, UNK
     Route: 042
     Dates: start: 20100526, end: 20100910
  4. CYCLOPHOSPHAMIDE [Suspect]
     Indication: B-CELL LYMPHOMA
     Dosage: 1500 MG, UNK
     Route: 042
     Dates: start: 20100526, end: 20100910
  5. DOXORUBICIN HCL [Suspect]
     Indication: B-CELL LYMPHOMA
     Dosage: 100 MG, UNK
     Route: 042
     Dates: start: 20100526, end: 20100910

REACTIONS (3)
  - DYSARTHRIA [None]
  - GAIT DISTURBANCE [None]
  - NERVOUS SYSTEM DISORDER [None]
